APPROVED DRUG PRODUCT: FLUORESCEIN SODIUM
Active Ingredient: FLUORESCEIN SODIUM
Strength: EQ 500MG BASE/5ML (EQ 100MG BASE/ML)
Dosage Form/Route: INJECTABLE;INTRAVENOUS
Application: A215709 | Product #001 | TE Code: AP
Applicant: NEXUS PHARMACEUTICALS LLC
Approved: Sep 25, 2023 | RLD: No | RS: No | Type: RX